FAERS Safety Report 10083022 (Version 2)
Quarter: 2014Q2

REPORT INFORMATION
  Report Type: Spontaneous
  Country: US (occurrence: US)
  Receive Date: 20140417
  Receipt Date: 20140422
  Transmission Date: 20141212
  Serious: Yes (Other)
  Sender: FDA-Public Use
  Company Number: US-DRREDDYS-USA/USA/14/0039695

PATIENT
  Age: 53 Year
  Sex: Male
  Weight: 104.3 kg

DRUGS (1)
  1. CETIRIZINE 10 MG [Suspect]
     Indication: HYPERSENSITIVITY
     Route: 048
     Dates: start: 20140413

REACTIONS (1)
  - Epistaxis [Recovered/Resolved]
